FAERS Safety Report 25555019 (Version 2)
Quarter: 2025Q3

REPORT INFORMATION
  Report Type: Spontaneous
  Country: US (occurrence: US)
  Receive Date: 20250715
  Receipt Date: 20250715
  Transmission Date: 20251020
  Serious: No
  Sender: NOVO NORDISK
  Company Number: US-NOVOPROD-1182824

PATIENT
  Age: 69 Year
  Sex: Male

DRUGS (13)
  1. OZEMPIC [Suspect]
     Active Substance: SEMAGLUTIDE
     Indication: Hormone replacement therapy
     Dosage: 0.5 MG, QW
     Route: 058
     Dates: start: 20241203
  2. OZEMPIC [Suspect]
     Active Substance: SEMAGLUTIDE
     Indication: Depression
  3. OZEMPIC [Suspect]
     Active Substance: SEMAGLUTIDE
     Indication: Diabetes mellitus management
  4. OZEMPIC [Suspect]
     Active Substance: SEMAGLUTIDE
     Indication: Hormone replacement therapy
  5. OZEMPIC [Suspect]
     Active Substance: SEMAGLUTIDE
     Indication: Weight control
     Dosage: 0.25 MG, QW
     Route: 058
     Dates: start: 20231116, end: 2024
  6. TESTOSTERONE CYPIONATE [Concomitant]
     Active Substance: TESTOSTERONE CYPIONATE
     Indication: Blood testosterone decreased
  7. TESTOSTERONE CYPIONATE [Concomitant]
     Active Substance: TESTOSTERONE CYPIONATE
     Dosage: 75 MG, QW
  8. TESTOSTERONE CYPIONATE [Concomitant]
     Active Substance: TESTOSTERONE CYPIONATE
     Dosage: 50 MG, QW
  9. OZEMPIC [Suspect]
     Active Substance: SEMAGLUTIDE
     Indication: Depression
  10. OZEMPIC [Suspect]
     Active Substance: SEMAGLUTIDE
     Indication: Diabetes mellitus management
  11. OZEMPIC [Suspect]
     Active Substance: SEMAGLUTIDE
     Indication: Hormone replacement therapy
  12. OZEMPIC [Suspect]
     Active Substance: SEMAGLUTIDE
     Indication: Hormone replacement therapy
  13. OZEMPIC [Suspect]
     Active Substance: SEMAGLUTIDE
     Indication: Weight control

REACTIONS (6)
  - COVID-19 [Unknown]
  - Post-acute COVID-19 syndrome [Not Recovered/Not Resolved]
  - Depression [Unknown]
  - Abdominal discomfort [Unknown]
  - Off label use [Unknown]
  - Inappropriate schedule of product administration [Not Recovered/Not Resolved]

NARRATIVE: CASE EVENT DATE: 20231116
